FAERS Safety Report 24800152 (Version 2)
Quarter: 2025Q1

REPORT INFORMATION
  Report Type: Spontaneous
  Country: US (occurrence: US)
  Receive Date: 20250102
  Receipt Date: 20250109
  Transmission Date: 20250408
  Serious: Yes (Other)
  Sender: PFIZER
  Company Number: US-PFIZER INC-PV202400169791

PATIENT
  Age: 67 Year
  Sex: Female

DRUGS (4)
  1. OXALIPLATIN [Suspect]
     Active Substance: OXALIPLATIN
     Indication: Colon cancer metastatic
     Dates: start: 2021, end: 2021
  2. FLUOROURACIL [Concomitant]
     Active Substance: FLUOROURACIL
     Indication: Colon cancer metastatic
     Dates: start: 2021, end: 2021
  3. LEUCOVORIN [Concomitant]
     Active Substance: LEUCOVORIN\LEUCOVORIN CALCIUM
     Indication: Colon cancer metastatic
     Dates: start: 2021, end: 2021
  4. BEVACIZUMAB [Concomitant]
     Active Substance: BEVACIZUMAB
     Indication: Colon cancer metastatic
     Dates: start: 2021, end: 2021

REACTIONS (6)
  - Nodular regenerative hyperplasia [Unknown]
  - Non-cirrhotic portal hypertension [Unknown]
  - Varices oesophageal [Unknown]
  - Portal hypertensive gastropathy [Unknown]
  - Stoma site haemorrhage [Recovered/Resolved]
  - Splenomegaly [Unknown]

NARRATIVE: CASE EVENT DATE: 20210101
